FAERS Safety Report 6416137-1 (Version None)
Quarter: 2009Q4

REPORT INFORMATION
  Report Type: 
  Country: None (occurrence: None)
  Receive Date: 20091023
  Receipt Date: 20091014
  Transmission Date: 20100525
  Serious: Yes (Hospitalization)
  Sender: FDA-Public Use
  Company Number: MSER20090053

PATIENT
  Age: 2 Week
  Sex: Female

DRUGS (1)
  1. MORPHINE SULFATE [Suspect]
     Indication: ANALGESIC THERAPY
     Dosage: CONTINUOUS INFUSION

REACTIONS (5)
  - ABDOMINAL DISTENSION [None]
  - BLOOD CREATININE INCREASED [None]
  - PYELOCALIECTASIS [None]
  - URINARY RETENTION [None]
  - URINE OUTPUT DECREASED [None]
